FAERS Safety Report 17544509 (Version 1)
Quarter: 2020Q1

REPORT INFORMATION
  Report Type: Spontaneous
  Country: CN (occurrence: CN)
  Receive Date: 20200316
  Receipt Date: 20200316
  Transmission Date: 20200409
  Serious: Yes (Other)
  Sender: FDA-Public Use
  Company Number: NVSC2020CN073532

PATIENT

DRUGS (1)
  1. TACROLIMUS. [Suspect]
     Active Substance: TACROLIMUS
     Indication: NEPHROTIC SYNDROME
     Dosage: 0.05?0.1 MG/KG/DAY IN TWO DIVIDED DOSES
     Route: 065

REACTIONS (2)
  - Nephropathy toxic [Recovering/Resolving]
  - Product use in unapproved indication [Unknown]
